FAERS Safety Report 16661603 (Version 12)
Quarter: 2020Q3

REPORT INFORMATION
  Report Type: Report from Study
  Country: US (occurrence: US)
  Receive Date: 20190802
  Receipt Date: 20200730
  Transmission Date: 20201102
  Serious: Yes (Hospitalization, Other)
  Sender: FDA-Public Use
  Company Number: US-ACTELION-A-NJ2019-193672

PATIENT
  Age: 32 Year
  Sex: Female

DRUGS (4)
  1. TADALAFIL. [Concomitant]
     Active Substance: TADALAFIL
  2. OPSUMIT [Suspect]
     Active Substance: MACITENTAN
     Indication: PULMONARY ARTERIAL HYPERTENSION
     Dosage: 10 MG, QD
     Route: 048
     Dates: start: 20180919
  3. LATUDA [Suspect]
     Active Substance: LURASIDONE HYDROCHLORIDE
     Indication: ANXIETY
     Route: 065
  4. REMODULIN [Concomitant]
     Active Substance: TREPROSTINIL

REACTIONS (26)
  - Syncope [Unknown]
  - Cerebrovascular accident [Unknown]
  - Dyspnoea [Not Recovered/Not Resolved]
  - Nausea [Not Recovered/Not Resolved]
  - Joint stiffness [Unknown]
  - Decreased appetite [Unknown]
  - Weight decreased [Unknown]
  - Catheter site irritation [Recovered/Resolved]
  - Palpitations [Unknown]
  - Headache [Not Recovered/Not Resolved]
  - Cough [Not Recovered/Not Resolved]
  - Device leakage [Unknown]
  - Catheter site inflammation [Unknown]
  - Catheter placement [Recovered/Resolved]
  - Chest pain [Recovered/Resolved]
  - Anxiety [Unknown]
  - Fatigue [Unknown]
  - Catheter site haemorrhage [Unknown]
  - Catheter site pain [Unknown]
  - Tachycardia [Unknown]
  - Dizziness [Unknown]
  - Complication associated with device [Unknown]
  - Catheter site rash [Unknown]
  - Hospitalisation [Unknown]
  - Diarrhoea [Not Recovered/Not Resolved]
  - Restlessness [Unknown]

NARRATIVE: CASE EVENT DATE: 20190715
